FAERS Safety Report 4452207-5 (Version None)
Quarter: 2004Q3

REPORT INFORMATION
  Report Type: 
  Country: None (occurrence: None)
  Receive Date: 20040917
  Receipt Date: 20040817
  Transmission Date: 20050211
  Serious: Yes (Hospitalization)
  Sender: FDA-Public Use
  Company Number: US-BRISTOL-MYERS SQUIBB COMPANY-12674081

PATIENT
  Age: 87 Year
  Sex: Male
  Weight: 77 kg

DRUGS (4)
  1. COUMADIN [Suspect]
     Indication: DEEP VEIN THROMBOSIS
     Dosage: DRUG HELD 8/9/04 VS 8/15; RE-STARTED(DATE NOT PROVIDED) AT 5MG X 4DAYS/WK +5MG,ONE 1/2 TAB 3 DAYS/WK
     Route: 048
     Dates: start: 19820101
  2. ENALAPRIL [Concomitant]
  3. LASIX [Concomitant]
  4. OTHERS (NOS) [Concomitant]

REACTIONS (2)
  - FEELING ABNORMAL [None]
  - INTERNATIONAL NORMALISED RATIO ABNORMAL [None]
